FAERS Safety Report 9342750 (Version 1)
Quarter: 2013Q2

REPORT INFORMATION
  Report Type: Spontaneous
  Country: CA (occurrence: CA)
  Receive Date: 20130611
  Receipt Date: 20130611
  Transmission Date: 20140414
  Serious: Yes (Hospitalization)
  Sender: FDA-Public Use
  Company Number: CA-AMGEN-CANSP2013040592

PATIENT
  Age: 75 Year
  Sex: Female

DRUGS (2)
  1. NEULASTA [Suspect]
     Indication: NEOPLASM MALIGNANT
     Dosage: 10 MG/ML
     Route: 065
     Dates: start: 20130214
  2. NEUPOGEN [Suspect]
     Indication: NEOPLASM MALIGNANT
     Dosage: UNK
     Route: 065

REACTIONS (3)
  - Urinary tract infection [Not Recovered/Not Resolved]
  - Decreased appetite [Not Recovered/Not Resolved]
  - Fatigue [Not Recovered/Not Resolved]
